FAERS Safety Report 18039721 (Version 3)
Quarter: 2020Q4

REPORT INFORMATION
  Report Type: Spontaneous
  Country: US (occurrence: US)
  Receive Date: 20200717
  Receipt Date: 20201009
  Transmission Date: 20210113
  Serious: Yes (Other)
  Sender: FDA-Public Use
  Company Number: US-BAYER-2020-142159

PATIENT
  Age: 46 Year
  Sex: Female

DRUGS (2)
  1. MIRENA [Suspect]
     Active Substance: LEVONORGESTREL
     Indication: MENORRHAGIA
  2. MIRENA [Suspect]
     Active Substance: LEVONORGESTREL
     Indication: CONTRACEPTION
     Dosage: 20  ?G PER DAY CONT
     Route: 015
     Dates: start: 20170126, end: 20200701

REACTIONS (6)
  - Device expulsion [Recovered/Resolved]
  - Embedded device [Unknown]
  - Complication of device removal [Unknown]
  - Device breakage [Recovered/Resolved]
  - Genital haemorrhage [None]
  - Device difficult to use [Unknown]

NARRATIVE: CASE EVENT DATE: 20200701
